FAERS Safety Report 11102973 (Version 1)
Quarter: 2015Q2

REPORT INFORMATION
  Report Type: Spontaneous
  Country: US (occurrence: None)
  Receive Date: 20150508
  Receipt Date: 20150508
  Transmission Date: 20150821
  Serious: Yes (Life-Threatening, Other)
  Sender: FDA-Public Use
  Company Number: None

PATIENT
  Age: 67 Year
  Sex: Male
  Weight: 104.8 kg

DRUGS (1)
  1. MULTIVITAMINS [Suspect]
     Active Substance: VITAMINS
     Indication: EYE DISORDER
     Route: 048
     Dates: start: 20140821, end: 20150330

REACTIONS (5)
  - Urticaria [None]
  - Paraesthesia [None]
  - Pruritus [None]
  - Hypersensitivity [None]
  - Angioedema [None]

NARRATIVE: CASE EVENT DATE: 20150330
